FAERS Safety Report 18240473 (Version 1)
Quarter: 2020Q3

REPORT INFORMATION
  Report Type: Spontaneous
  Country: US (occurrence: US)
  Receive Date: 20200904
  Receipt Date: 20200904
  Transmission Date: 20201103
  Serious: Yes (Hospitalization)
  Sender: FDA-Public Use
  Company Number: None

PATIENT
  Age: 59 Year
  Sex: Female

DRUGS (4)
  1. SYNTHROID [Concomitant]
     Active Substance: LEVOTHYROXINE SODIUM
  2. PREVYMIS [Suspect]
     Active Substance: LETERMOVIR
     Indication: MYELODYSPLASTIC SYNDROME
     Route: 048
  3. POTASSIUM [Concomitant]
     Active Substance: POTASSIUM
  4. MORPHINE [Concomitant]
     Active Substance: MORPHINE

REACTIONS (1)
  - Bone marrow transplant [None]
